FAERS Safety Report 12789630 (Version 2)
Quarter: 2017Q2

REPORT INFORMATION
  Report Type: Spontaneous
  Country: BR (occurrence: BR)
  Receive Date: 20160928
  Receipt Date: 20170605
  Transmission Date: 20170830
  Serious: Yes (Other)
  Sender: FDA-Public Use
  Company Number: BR-ABBVIE-16P-020-1739852-00

PATIENT
  Sex: Female
  Weight: 79 kg

DRUGS (11)
  1. DAFORIN [Concomitant]
     Active Substance: FLUOXETINE HYDROCHLORIDE
     Indication: PRODUCT USED FOR UNKNOWN INDICATION
     Dosage: DAILY DOSE: 20 MG; AT NIGHT
     Route: 048
     Dates: start: 2010, end: 2012
  2. DEPAKOTE [Suspect]
     Active Substance: DIVALPROEX SODIUM
     Dosage: DAILY DOSE: 500 MG; MORNING/NIGHT
     Route: 065
     Dates: start: 2010, end: 2011
  3. DEPAKOTE ER [Suspect]
     Active Substance: DIVALPROEX SODIUM
     Indication: AFFECTIVE DISORDER
     Dosage: DAILY DOSE: 500 MG; MORNING/NIGHT
     Route: 048
     Dates: start: 2010, end: 2011
  4. OLCADIL [Suspect]
     Active Substance: CLOXAZOLAM
     Indication: PRODUCT USED FOR UNKNOWN INDICATION
     Dosage: HALF TABLET IN MORNING AND ONE TABLET AT NIGHT
     Route: 048
     Dates: start: 2012
  5. DAFORIN [Concomitant]
     Active Substance: FLUOXETINE HYDROCHLORIDE
     Indication: ANTIDEPRESSANT THERAPY
  6. DEPAKOTE [Suspect]
     Active Substance: DIVALPROEX SODIUM
     Indication: AFFECTIVE DISORDER
     Dosage: DAILY DOSE: 250 MG; AT NIGHT
     Route: 065
     Dates: start: 2008, end: 2010
  7. DEPAKOTE ER [Suspect]
     Active Substance: DIVALPROEX SODIUM
     Dosage: DAILY DOSE: 500 MG; AT NIGHT
     Route: 048
     Dates: start: 201606, end: 201612
  8. FLUOXETINE [Suspect]
     Active Substance: FLUOXETINE HYDROCHLORIDE
     Indication: PRODUCT USED FOR UNKNOWN INDICATION
     Route: 065
  9. DEPAKOTE [Suspect]
     Active Substance: DIVALPROEX SODIUM
     Route: 065
  10. DEPAKOTE ER [Suspect]
     Active Substance: DIVALPROEX SODIUM
     Dosage: AT NIGHT
     Route: 048
     Dates: start: 201612
  11. DAFORIN [Concomitant]
     Active Substance: FLUOXETINE HYDROCHLORIDE
     Indication: ANTIDEPRESSANT THERAPY
     Dosage: UNIT DOSE 10 DROPS, IN THE MORNING
     Route: 065

REACTIONS (9)
  - Insomnia [Recovered/Resolved]
  - Dyspepsia [Recovered/Resolved]
  - Anxiety [Recovered/Resolved]
  - Nervousness [Recovered/Resolved]
  - Fear [Recovered/Resolved]
  - Maternal exposure during pregnancy [Unknown]
  - Panic reaction [Recovered/Resolved]
  - Abortion [Unknown]
  - Abdominal pain upper [Recovered/Resolved]

NARRATIVE: CASE EVENT DATE: 2010
